FAERS Safety Report 23772049 (Version 3)
Quarter: 2024Q2

REPORT INFORMATION
  Report Type: Spontaneous
  Country: US (occurrence: US)
  Receive Date: 20240423
  Receipt Date: 20240606
  Transmission Date: 20240716
  Serious: Yes (Other)
  Sender: FDA-Public Use
  Company Number: US-BEH-2024171030

PATIENT
  Sex: Female

DRUGS (1)
  1. HIZENTRA [Suspect]
     Active Substance: HUMAN IMMUNOGLOBULIN G
     Indication: Immunodeficiency common variable
     Dosage: 12 G, QW
     Route: 058

REACTIONS (7)
  - Abortion spontaneous [Unknown]
  - Infertility female [Unknown]
  - Drug exposure before pregnancy [Unknown]
  - Exposure during pregnancy [Unknown]
  - Therapy cessation [Unknown]
  - Headache [Unknown]
  - Mite allergy [Unknown]
